FAERS Safety Report 9508445 (Version 1)
Quarter: 2013Q3

REPORT INFORMATION
  Report Type: Spontaneous
  Country: US (occurrence: US)
  Receive Date: 20130909
  Receipt Date: 20130909
  Transmission Date: 20140515
  Serious: No
  Sender: FDA-Public Use
  Company Number: US-BAYER-2013-108331

PATIENT
  Age: 61 Year
  Sex: Male
  Weight: 72.56 kg

DRUGS (6)
  1. ALEVE CAPLET [Suspect]
     Indication: ANALGESIC THERAPY
     Dosage: 1 DF, PRN
     Route: 048
     Dates: start: 2008
  2. ALEVE CAPLET [Suspect]
     Indication: ANALGESIC THERAPY
     Dosage: UNK, DAILY FOR MORE THAN 10 DAYS IN ROW
  3. BAYER ASPIRIN REGIMEN ADULT LOW STRENGTH [Concomitant]
  4. VITAMIN C [Concomitant]
  5. CHONDROITIN [Concomitant]
  6. FISH OIL [Concomitant]

REACTIONS (1)
  - Incorrect drug administration duration [None]
